FAERS Safety Report 4930857-7 (Version None)
Quarter: 2006Q1

REPORT INFORMATION
  Report Type: 
  Country: None (occurrence: None)
  Receive Date: 20060302
  Receipt Date: 20060220
  Transmission Date: 20060701
  Serious: Yes (Disabling, Other)
  Sender: FDA-Public Use
  Company Number: GB-BOEHRINGER INGELHEIM PHARMACEUTICALS, INC.-2006-BP-02354YA

PATIENT
  Sex: Male
  Weight: 83 kg

DRUGS (7)
  1. FLOMAX [Suspect]
     Indication: BENIGN PROSTATIC HYPERPLASIA
     Route: 048
     Dates: start: 19970828
  2. RANITIDINE [Concomitant]
  3. PROPRANOLOL [Concomitant]
  4. DIPYRIDAMOLE [Concomitant]
  5. FINASTERIDE [Concomitant]
  6. SALBUTAMOL [Concomitant]
     Route: 055
  7. HYPROMELLOSE [Concomitant]

REACTIONS (8)
  - BLINDNESS [None]
  - BLINDNESS UNILATERAL [None]
  - CATARACT OPERATION [None]
  - CATARACT OPERATION COMPLICATION [None]
  - DRUG INTERACTION [None]
  - IRIS DISORDER [None]
  - RETINAL DETACHMENT [None]
  - VITREOUS DISORDER [None]
